FAERS Safety Report 18374317 (Version 1)
Quarter: 2020Q4

REPORT INFORMATION
  Report Type: Report from Study
  Country: None (occurrence: HU)
  Receive Date: 20201012
  Receipt Date: 20201012
  Transmission Date: 20210114
  Serious: Yes (Other)
  Sender: FDA-Public Use
  Company Number: HU-ABBVIE-20K-076-3604083-00

PATIENT
  Sex: Male

DRUGS (11)
  1. DUODOPA [Suspect]
     Active Substance: CARBIDOPA\LEVODOPA
  2. PERINDOPRIL [Concomitant]
     Active Substance: PERINDOPRIL
     Indication: HYPERTENSION
     Route: 048
  3. QUETIAPINE/TEVA [Concomitant]
     Indication: DEPRESSION
     Route: 048
     Dates: start: 20150626
  4. XANAX [Concomitant]
     Active Substance: ALPRAZOLAM
     Indication: PRODUCT USED FOR UNKNOWN INDICATION
     Dosage: 0.5 MG AT MORNING; 1 MG IN THE EVENING
     Route: 048
  5. MADOPAR [Concomitant]
     Active Substance: BENSERAZIDE HYDROCHLORIDE\LEVODOPA
     Indication: PARKINSON^S DISEASE
     Dosage: HALF TABLET AT NIGHT
     Route: 048
  6. PANTOPRAZOL [Concomitant]
     Active Substance: PANTOPRAZOLE SODIUM
     Indication: PROPHYLAXIS
     Route: 048
  7. METFOGAMMA [Concomitant]
     Active Substance: METFORMIN HYDROCHLORIDE
     Indication: PRODUCT USED FOR UNKNOWN INDICATION
     Route: 048
  8. DUODOPA [Suspect]
     Active Substance: CARBIDOPA\LEVODOPA
     Indication: PARKINSON^S DISEASE
     Dosage: MORNING DOSE: 6.8 ML; CONTINUOUS DOSE: 3.3 ML/HOUR; EXTRA DOSE: 1.2 ML
     Route: 050
     Dates: start: 20150227
  9. DULSEVIA [Concomitant]
     Active Substance: DULOXETINE HYDROCHLORIDE
     Indication: DEPRESSION
     Dates: start: 20160301
  10. AMLODIPIN [Concomitant]
     Active Substance: AMLODIPINE BESYLATE
     Indication: HYPERTENSION
     Route: 048
  11. THIOGAMMA [Concomitant]
     Active Substance: .ALPHA.-LIPOIC ACID
     Indication: NEUROPATHY PERIPHERAL
     Route: 048

REACTIONS (2)
  - Loss of consciousness [Recovered/Resolved]
  - Amnesia [Recovered/Resolved]

NARRATIVE: CASE EVENT DATE: 20201004
